FAERS Safety Report 6727756-7 (Version None)
Quarter: 2010Q2

REPORT INFORMATION
  Report Type: 
  Country: None (occurrence: None)
  Receive Date: 20100517
  Receipt Date: 20100513
  Transmission Date: 20101027
  Serious: Yes (Death)
  Sender: FDA-Public Use
  Company Number: GB-ASTRAZENECA-2010SE12419

PATIENT
  Age: 63 Year
  Sex: Male
  Weight: 56.2 kg

DRUGS (15)
  1. QUETIAPINE [Suspect]
     Indication: MAJOR DEPRESSION
     Route: 048
     Dates: start: 20091218
  2. QUETIAPINE [Suspect]
     Route: 048
     Dates: start: 20091222
  3. QUETIAPINE [Suspect]
     Route: 048
     Dates: start: 20091223
  4. QUETIAPINE [Suspect]
     Route: 048
     Dates: start: 20091224, end: 20091231
  5. QUETIAPINE [Suspect]
     Route: 048
     Dates: start: 20100101
  6. QUETIAPINE [Suspect]
     Route: 048
     Dates: start: 20100102
  7. QUETIAPINE [Suspect]
     Route: 048
     Dates: start: 20100103
  8. LISINOPRIL [Concomitant]
  9. LANSOPRAZOLE [Concomitant]
     Indication: DYSPEPSIA
     Route: 048
  10. PREGABOLINE [Concomitant]
     Route: 048
  11. FLUOXETINE [Concomitant]
     Indication: DEPRESSION
     Route: 048
     Dates: start: 20091218
  12. OXYCONTIN [Concomitant]
     Indication: PAIN
     Route: 048
  13. DIAZEPAM [Concomitant]
     Indication: ANXIETY
     Route: 048
     Dates: start: 20091230
  14. LACTULOSE [Concomitant]
     Route: 048
  15. DOCUSATE [Concomitant]
     Route: 048

REACTIONS (1)
  - SUDDEN DEATH [None]
